FAERS Safety Report 21951720 (Version 1)
Quarter: 2023Q1

REPORT INFORMATION
  Report Type: Spontaneous
  Country: GB (occurrence: GB)
  Receive Date: 20230203
  Receipt Date: 20230203
  Transmission Date: 20230417
  Serious: Yes (Hospitalization, Other)
  Sender: FDA-Public Use
  Company Number: GB-SA-2013SA096822

PATIENT
  Age: 39 Year
  Sex: Female
  Weight: 60 kg

DRUGS (6)
  1. METHOTREXATE SODIUM [Interacting]
     Active Substance: METHOTREXATE SODIUM
     Indication: Arthritis
     Dosage: 10 MG, UNK
     Route: 065
     Dates: start: 201208
  2. METHOTREXATE SODIUM [Interacting]
     Active Substance: METHOTREXATE SODIUM
     Indication: Psoriatic arthropathy
  3. EPILIM [Interacting]
     Active Substance: VALPROATE SODIUM
     Indication: Affective disorder
     Dosage: 700 MG, 1X/DAY DAILY
     Route: 048
     Dates: start: 2003
  4. EPILIM [Interacting]
     Active Substance: VALPROATE SODIUM
     Indication: Bipolar disorder
     Dosage: 700 MG, 1X/DAY DAILY
     Route: 048
  5. EPILIM [Interacting]
     Active Substance: VALPROATE SODIUM
     Indication: Arthritis
     Dosage: 800 MG, 1X/DAY
     Route: 048
  6. EPILIM [Interacting]
     Active Substance: VALPROATE SODIUM
     Indication: Psoriatic arthropathy
     Dosage: 800 MG, 1X/DAY
     Route: 048

REACTIONS (8)
  - Drug interaction [Unknown]
  - Therapeutic product effect decreased [Unknown]
  - Acute psychosis [Recovering/Resolving]
  - Nausea [Recovered/Resolved]
  - Mouth ulceration [Recovering/Resolving]
  - Weight increased [Recovered/Resolved]
  - Hypertrichosis [Unknown]
  - Mental disorder [Unknown]

NARRATIVE: CASE EVENT DATE: 20130227
